FAERS Safety Report 7133299-1 (Version None)
Quarter: 2010Q4

REPORT INFORMATION
  Report Type: 
  Country: None (occurrence: None)
  Receive Date: 20101202
  Receipt Date: 20101122
  Transmission Date: 20110411
  Serious: Yes (Other)
  Sender: FDA-Public Use
  Company Number: US-PFIZER INC-2010155108

PATIENT
  Sex: Female
  Weight: 56.689 kg

DRUGS (3)
  1. PRISTIQ [Suspect]
     Indication: DIZZINESS
     Dosage: 50 MG, 1X/DAY
     Route: 048
     Dates: start: 20101118, end: 20101121
  2. PRISTIQ [Suspect]
     Indication: ANXIETY
  3. LEVOTHYROXINE [Concomitant]
     Indication: HYPOTHYROIDISM
     Dosage: UNK

REACTIONS (1)
  - THYROID FUNCTION TEST ABNORMAL [None]
